FAERS Safety Report 4781021-6 (Version None)
Quarter: 2005Q3

REPORT INFORMATION
  Report Type: 
  Country: None (occurrence: None)
  Receive Date: 20050926
  Receipt Date: 20050914
  Transmission Date: 20060218
  Serious: Yes (Other)
  Sender: FDA-Public Use
  Company Number: S05-FRA-03473-01

PATIENT
  Age: 45 Year
  Sex: Male

DRUGS (3)
  1. SEROPLEX (ESCITALOPRAM) [Suspect]
     Dosage: 10 MG QD PO
     Route: 048
  2. PRAZEPAM [Suspect]
  3. EQUANIL [Suspect]

REACTIONS (1)
  - AGGRESSION [None]
